FAERS Safety Report 4287075-8 (Version None)
Quarter: 2004Q1

REPORT INFORMATION
  Report Type: 
  Country: None (occurrence: None)
  Receive Date: 20040121
  Receipt Date: 20030611
  Transmission Date: 20041129
  Serious: Yes (Hospitalization)
  Sender: FDA-Public Use
  Company Number: A03200301291

PATIENT
  Age: 89 Year
  Sex: Female
  Weight: 72.5755 kg

DRUGS (14)
  1. PLAVIX [Suspect]
     Indication: MYOCARDIAL INFARCTION
     Dosage: 75 MG QD - ORAL
     Route: 048
     Dates: start: 20030301, end: 20030501
  2. ALLOPURINOL [Concomitant]
  3. PROPOXYPHENE NAPSYLATE AND ACETAMINOPHEN [Concomitant]
  4. CHLORZOXAZONE [Concomitant]
  5. TOLTERODINE L-TARTRATE [Concomitant]
  6. DIGOXIN [Concomitant]
  7. DILTIAZEM [Concomitant]
  8. TRIAMTERENE AND HYDROXYCHLOROTHIAZIDE [Concomitant]
  9. POTASSIUM CHLORIDE [Concomitant]
  10. GLIPIZIDE [Concomitant]
  11. SIMVASTATIN [Concomitant]
  12. DICLOFENAC AND MISOPROSTOL [Concomitant]
  13. CARVEDILOL [Concomitant]
  14. BIOTIN [Concomitant]

REACTIONS (4)
  - ABDOMINAL PAIN UPPER [None]
  - CHEST DISCOMFORT [None]
  - MELAENA [None]
  - ULCER HAEMORRHAGE [None]
